FAERS Safety Report 25947544 (Version 1)
Quarter: 2025Q4

REPORT INFORMATION
  Report Type: Spontaneous
  Country: EU (occurrence: EU)
  Receive Date: 20251022
  Receipt Date: 20251022
  Transmission Date: 20260117
  Serious: Yes (Other)
  Sender: AUROBINDO
  Company Number: EU-AEMPS-1762882

PATIENT
  Sex: Female

DRUGS (2)
  1. QUETIAPINE [Interacting]
     Active Substance: QUETIAPINE
     Indication: Product used for unknown indication
     Dosage: 75 MILLIGRAM,1 TOTAL
     Route: 048
     Dates: start: 202508, end: 202508
  2. OLANZAPINE [Interacting]
     Active Substance: OLANZAPINE
     Indication: Product used for unknown indication
     Dosage: 0.5 MILLIGRAM, 1 TOTAL
     Route: 030
     Dates: start: 202508, end: 202508

REACTIONS (4)
  - Somnolence [Unknown]
  - Hypotension [Unknown]
  - Wrong patient received product [Unknown]
  - Wrong product administered [Unknown]

NARRATIVE: CASE EVENT DATE: 20250801
